FAERS Safety Report 7501692-0 (Version None)
Quarter: 2011Q2

REPORT INFORMATION
  Report Type: 
  Country: None (occurrence: None)
  Receive Date: 20110525
  Receipt Date: 20110517
  Transmission Date: 20111010
  Serious: Yes (Other)
  Sender: FDA-Public Use
  Company Number: US-BRISTOL-MYERS SQUIBB COMPANY-15750888

PATIENT
  Sex: Female

DRUGS (4)
  1. NASACORT [Concomitant]
     Indication: HYPERSENSITIVITY
  2. KOMBIGLYZE XR [Suspect]
     Dates: start: 20110509, end: 20110514
  3. BYSTOLIC [Concomitant]
     Indication: HYPERTENSION
  4. PREDNISONE [Concomitant]
     Indication: HYPERSENSITIVITY

REACTIONS (7)
  - HEART RATE INCREASED [None]
  - THERAPEUTIC RESPONSE UNEXPECTED [None]
  - ABDOMINAL PAIN [None]
  - SLEEP DISORDER [None]
  - DYSPNOEA [None]
  - PERIPHERAL COLDNESS [None]
  - FATIGUE [None]
